FAERS Safety Report 11192327 (Version 1)
Quarter: 2015Q2

REPORT INFORMATION
  Report Type: Spontaneous
  Country: US (occurrence: US)
  Receive Date: 20150616
  Receipt Date: 20150616
  Transmission Date: 20150821
  Serious: Yes (Other)
  Sender: FDA-Public Use
  Company Number: US-BAYER-2015-315930

PATIENT
  Sex: Female

DRUGS (1)
  1. MIRENA [Suspect]
     Active Substance: LEVONORGESTREL
     Dosage: 20 MCG/24HR, CONT
     Route: 015
     Dates: start: 20090316, end: 20110608

REACTIONS (8)
  - Injury [None]
  - Embedded device [None]
  - Pain [None]
  - Device dislocation [None]
  - Hypertension [None]
  - Emotional distress [None]
  - Ovarian cyst [None]
  - Menstruation irregular [None]

NARRATIVE: CASE EVENT DATE: 20090601
